FAERS Safety Report 7791713-2 (Version None)
Quarter: 2011Q3

REPORT INFORMATION
  Report Type: 
  Country: None (occurrence: None)
  Receive Date: 20110930
  Receipt Date: 20110930
  Transmission Date: 20111222
  Serious: Yes (Life-Threatening, Hospitalization, Disabling)
  Sender: FDA-Public Use
  Company Number: None

PATIENT
  Sex: Female
  Weight: 72 kg

DRUGS (7)
  1. ALLEGRA D 24 HOUR [Concomitant]
  2. YASMIN [Suspect]
     Indication: CONTRACEPTION
     Dosage: 1 DAILY 002
     Dates: start: 20110902
  3. YASMIN [Suspect]
     Indication: HORMONE THERAPY
     Dosage: 1 DAILY 002
     Dates: start: 20110902
  4. YASMIN [Suspect]
     Indication: CONTRACEPTION
     Dosage: 1 DAILY 002
     Dates: start: 20050101
  5. YASMIN [Suspect]
     Indication: HORMONE THERAPY
     Dosage: 1 DAILY 002
     Dates: start: 20050101
  6. ALVESCO [Concomitant]
  7. CITALOPRAM HYDROBROMIDE [Concomitant]

REACTIONS (4)
  - GALLBLADDER NON-FUNCTIONING [None]
  - DEEP VEIN THROMBOSIS [None]
  - ABDOMINAL PAIN [None]
  - PULMONARY EMBOLISM [None]
